FAERS Safety Report 8599000-X (Version None)
Quarter: 2012Q3

REPORT INFORMATION
  Report Type: 
  Country: None (occurrence: None)
  Receive Date: 20120803
  Receipt Date: 20120723
  Transmission Date: 20120928
  Serious: Yes (Hospitalization, Other)
  Sender: FDA-Public Use
  Company Number: KV201200130

PATIENT
  Sex: Female

DRUGS (1)
  1. MAKENA [Suspect]
     Indication: MATERNAL EXPOSURE DURING PREGNANCY
     Dates: start: 20120301, end: 20120515

REACTIONS (5)
  - LOW BIRTH WEIGHT BABY [None]
  - PREMATURE BABY [None]
  - MATERNAL DRUGS AFFECTING FOETUS [None]
  - HERNIA [None]
  - CAESAREAN SECTION [None]
